FAERS Safety Report 4414100-3 (Version None)
Quarter: 2004Q3

REPORT INFORMATION
  Report Type: 
  Country: None (occurrence: None)
  Receive Date: 20040728
  Receipt Date: 20040609
  Transmission Date: 20050211
  Serious: Yes (Death, Hospitalization)
  Sender: FDA-Public Use
  Company Number: 2004-BP-03766RP (2)

PATIENT
  Age: 74 Year
  Sex: Male

DRUGS (3)
  1. MICARDIS [Suspect]
     Indication: HYPERTENSION
     Dosage: 40 MG (40 MG, 1 TAB OD); PO
     Route: 048
     Dates: start: 20031102
  2. AUGMENTIN (AMOXICILLIN W/CLAVULANATE POTASSIUM) [Concomitant]
  3. PREDNISONE [Concomitant]

REACTIONS (5)
  - ACUTE RESPIRATORY FAILURE [None]
  - CHRONIC OBSTRUCTIVE AIRWAYS DISEASE EXACERBATED [None]
  - COR PULMONALE [None]
  - CORONARY ARTERY DISEASE [None]
  - PNEUMONIA [None]
